FAERS Safety Report 6895980-9 (Version None)
Quarter: 2010Q3

REPORT INFORMATION
  Report Type: 
  Country: None (occurrence: None)
  Receive Date: 20100728
  Receipt Date: 20100716
  Transmission Date: 20110219
  Serious: Yes (Hospitalization)
  Sender: FDA-Public Use
  Company Number: TPA2010A04125

PATIENT
  Age: 57 Year
  Sex: Female
  Weight: 63.5 kg

DRUGS (1)
  1. ACTOS [Suspect]
     Indication: DIABETES MELLITUS
     Dosage: 15 MG, 1 IN 1 D, PER ORAL
     Route: 048
     Dates: start: 20070101, end: 20070101

REACTIONS (2)
  - GENERALISED OEDEMA [None]
  - PANCREATITIS [None]
